FAERS Safety Report 5468076-0 (Version None)
Quarter: 2007Q3

REPORT INFORMATION
  Report Type: 
  Country: None (occurrence: None)
  Receive Date: 20070926
  Receipt Date: 20070917
  Transmission Date: 20080115
  Serious: Yes (Death, Hospitalization, Other)
  Sender: FDA-Public Use
  Company Number: US-AVENTIS-200716574US

PATIENT
  Sex: Male

DRUGS (3)
  1. KETEK [Suspect]
     Dosage: DOSE: UNK
     Route: 048
     Dates: start: 20060101, end: 20060101
  2. LOVASTATIN [Suspect]
     Dosage: DOSE: UNK
  3. GENTAMICIN [Suspect]
     Dosage: DOSE: UNK

REACTIONS (5)
  - DRUG INTERACTION [None]
  - LIVER DISORDER [None]
  - MUSCLE INJURY [None]
  - RENAL FAILURE [None]
  - RHABDOMYOLYSIS [None]
